FAERS Safety Report 19536158 (Version 1)
Quarter: 2021Q3

REPORT INFORMATION
  Report Type: Spontaneous
  Country: TR (occurrence: TR)
  Receive Date: 20210714
  Receipt Date: 20210714
  Transmission Date: 20211014
  Serious: Yes (Other)
  Sender: FDA-Public Use
  Company Number: TR-ALVOGEN-2021-ALVOGEN-117221

PATIENT
  Age: 40 Year
  Sex: Female
  Weight: 65 kg

DRUGS (1)
  1. VORICONAZOLE. [Suspect]
     Active Substance: VORICONAZOLE
     Indication: BRONCHOPULMONARY ASPERGILLOSIS
     Dosage: 260 MG Q12H (2X390 MG LOADING) AND 210 MG Q12H ?5.6 MG/DL (8TH DAY) AND 8.6 MG/DL (13TH DAY)
     Route: 042

REACTIONS (1)
  - Toxicity to various agents [Unknown]
